FAERS Safety Report 6454055-3 (Version None)
Quarter: 2009Q4

REPORT INFORMATION
  Report Type: 
  Country: None (occurrence: None)
  Receive Date: 20091124
  Receipt Date: 20091118
  Transmission Date: 20100525
  Serious: Yes (Death)
  Sender: FDA-Public Use
  Company Number: B0598058A

PATIENT
  Age: 13 Year
  Sex: Male
  Weight: 48 kg

DRUGS (11)
  1. NELARABINE [Suspect]
     Indication: T-CELL LYMPHOMA
     Dosage: 910MG PER DAY
     Route: 065
     Dates: start: 20090818, end: 20090819
  2. VINCRISTINE [Suspect]
     Indication: T-CELL LYMPHOMA
     Route: 065
     Dates: start: 20090710, end: 20090710
  3. VINCRISTINE [Suspect]
     Route: 065
     Dates: start: 20090813, end: 20090813
  4. DEXAMETHASONE [Suspect]
     Indication: T-CELL LYMPHOMA
     Dosage: 602MG CUMULATIVE DOSE
     Route: 065
     Dates: start: 20090710, end: 20090710
  5. DEXAMETHASONE [Suspect]
     Dosage: 14MG PER DAY
     Route: 065
     Dates: start: 20090715, end: 20090806
  6. DEXAMETHASONE [Suspect]
     Dosage: 8MG PER DAY
     Route: 065
     Dates: start: 20090813, end: 20090916
  7. METHOTREXATE [Suspect]
     Indication: T-CELL LYMPHOMA
     Route: 037
     Dates: start: 20090713, end: 20090713
  8. CYCLOPHOSPHAMIDE [Suspect]
     Indication: NON-HODGKIN'S LYMPHOMA
     Dosage: 300MGM2 PER DAY
     Route: 065
     Dates: start: 20090715, end: 20090719
  9. ERWINASE [Suspect]
     Indication: T-CELL LYMPHOMA
     Dates: start: 20090730, end: 20090809
  10. ETOPOSIDE [Suspect]
     Indication: NON-HODGKIN'S LYMPHOMA
     Dosage: 100MGM2 PER DAY
     Route: 065
     Dates: start: 20090715, end: 20090719
  11. CLOFARABINE [Suspect]
     Indication: NON-HODGKIN'S LYMPHOMA
     Dosage: 40MGM2 PER DAY
     Route: 042
     Dates: start: 20090715, end: 20090719

REACTIONS (1)
  - DISEASE PROGRESSION [None]
